FAERS Safety Report 9512224 (Version 1)
Quarter: 2013Q1

REPORT INFORMATION
  Report Type: Spontaneous
  Country: US (occurrence: None)
  Receive Date: 20130305
  Receipt Date: 20130305
  Transmission Date: 20140127
  Serious: Yes (Other)
  Sender: FDA-Public Use
  Company Number: 163-21880-12101112

PATIENT
  Age: 70 Year
  Sex: Male
  Weight: 85.28 kg

DRUGS (18)
  1. REVLIMID [Suspect]
     Indication: PLASMA CELL MYELOMA
     Dosage: 10 MG, 21 IN 21 D, PO
     Route: 048
     Dates: start: 20120919
  2. BABY ASPIRIN (ACETYLSALICYLIC ACID) (UNKNOWN) [Concomitant]
  3. CALCIUM/MAGNESIUM/ZINC (CALCIUM MAGNESIUM ZINC) (UNKNOWN) [Concomitant]
  4. CARDURA (DOXAZOSIN MESILATE) (UNKNOWN) [Concomitant]
  5. CELEXA (CITALOPRAM HYDROBROMIDE) (UNKNOWN) [Concomitant]
  6. CLONIDINE (CLONIDINE) (UNKNOWN) [Concomitant]
  7. COREG (CARVEDILOL) (UNKNOWN) [Concomitant]
  8. DEXAMETHASONE (DEXAMETHASONE) (UNKNOWN) [Concomitant]
  9. EXFORGE (AMLODIPINE W/VALSARTAN) (UNKNOWN) [Concomitant]
  10. LASIX (FUROSEMIDE) (UNKNOWN) [Concomitant]
  11. METFORMIN (METFORMIN) (UNKNOWN) [Concomitant]
  12. MULTIVITAMN (MULTIVITAMINS) (UNKNOWN) [Concomitant]
  13. PRAVACHOL (PRAVASTATIN SODIUM) (UNKNOWN) [Concomitant]
  14. SELENIUM (SELENIUM) (UNKNOWN) [Concomitant]
  15. VITAMIN C [Concomitant]
  16. VITAMIN D3 (COLECALCIFEROL) (UNKNOWN) [Concomitant]
  17. VITAMIN E (TOCOPHEROL) (UNKNOWN) [Concomitant]
  18. ZETIA (EZETIMIBE) (UNKNOWN) [Concomitant]

REACTIONS (4)
  - Weight decreased [None]
  - Accidental overdose [None]
  - Pruritus [None]
  - Dizziness [None]
